FAERS Safety Report 8252831-8 (Version None)
Quarter: 2012Q2

REPORT INFORMATION
  Report Type: 
  Country: None (occurrence: None)
  Receive Date: 20120402
  Receipt Date: 20120201
  Transmission Date: 20120825
  Serious: No
  Sender: FDA-Public Use
  Company Number: US-ABBOTT-12P-163-0901688-00

PATIENT
  Sex: Male
  Weight: 102.6 kg

DRUGS (4)
  1. VALIUM [Concomitant]
     Indication: ANXIETY
  2. ANDROGEL [Suspect]
     Indication: BLOOD TESTOSTERONE DECREASED
     Route: 061
     Dates: start: 20120109
  3. LORTAB [Concomitant]
     Indication: BACK PAIN
  4. OMEPRAZOLE [Concomitant]
     Indication: ULCER

REACTIONS (2)
  - DRUG INEFFECTIVE [None]
  - ASTHENIA [None]
